FAERS Safety Report 6989426-X (Version None)
Quarter: 2010Q3

REPORT INFORMATION
  Report Type: 
  Country: None (occurrence: None)
  Receive Date: 20100916
  Receipt Date: 20091117
  Transmission Date: 20110219
  Serious: Yes (Death)
  Sender: FDA-Public Use
  Company Number: US-PFIZER INC-2009299647

PATIENT
  Sex: Male

DRUGS (6)
  1. LYRICA [Suspect]
     Indication: PAIN
     Dosage: 100 MG, 1X/DAY
     Route: 048
     Dates: start: 20091010
  2. FENTANYL [Suspect]
     Indication: BACK PAIN
     Dosage: 50MCG, 1 PATCH EVERY 72 HOURS
     Route: 062
     Dates: start: 20091029, end: 20091102
  3. ACETAMINOPHEN AND OXYCODONE HCL [Suspect]
     Indication: PAIN
     Dosage: 1 TABLET, 3X/DAY
     Route: 048
     Dates: start: 20090101, end: 20090301
  4. ZOLPIDEM [Suspect]
     Indication: INSOMNIA
     Dosage: 10 MG, 1X/DAY
     Route: 048
     Dates: start: 20091027
  5. TRIFLUOPERAZINE [Suspect]
     Indication: SCHIZOPHRENIA
     Dosage: 10 MG, 2X/DAY
     Route: 048
     Dates: end: 20090801
  6. OXYCONTIN [Suspect]
     Indication: PAIN
     Dosage: 40 MG, 3X/DAY
     Route: 048
     Dates: end: 20090301

REACTIONS (1)
  - DEATH [None]
